FAERS Safety Report 26143954 (Version 1)
Quarter: 2025Q4

REPORT INFORMATION
  Report Type: Report from Study
  Country: IN (occurrence: IN)
  Receive Date: 20251211
  Receipt Date: 20251211
  Transmission Date: 20260118
  Serious: Yes (Death, Other)
  Sender: CIPLA
  Company Number: IN-CIPLA LTD.-2025IN15448

PATIENT

DRUGS (20)
  1. LINAGLIPTIN [Suspect]
     Active Substance: LINAGLIPTIN
     Indication: Product used for unknown indication
     Dosage: 5 MILLIGRAM, QD, BBF (BEFORE BREAKFAST)
     Route: 048
     Dates: start: 2025
  2. SOMPRAZ [OMEPRAZOLE] [Concomitant]
     Indication: Product used for unknown indication
     Dosage: 1 DOSAGE FORM, BID (8 AM, 8 PM), STRENGTH: 40 (UNSPECIFIED UNITS)
     Route: 042
     Dates: start: 2025
  3. SACUBITRIL\VALSARTAN [Concomitant]
     Active Substance: SACUBITRIL\VALSARTAN
     Indication: Product used for unknown indication
     Dosage: 1 DOSAGE FORM, BID (10...10)
     Route: 048
     Dates: start: 2025
  4. TRESIBA [Concomitant]
     Active Substance: INSULIN DEGLUDEC
     Indication: Product used for unknown indication
     Dosage: 1 DOSAGE FORM, QD, HS-AT NIGHT (10 PM), STRENGTH: 20 UNIT
     Route: 058
     Dates: start: 2025
  5. KERENDIA [Concomitant]
     Active Substance: FINERENONE
     Indication: Product used for unknown indication
     Dosage: 20 MILLIGRAM, QD (10 AM)
     Route: 048
     Dates: start: 2025
  6. MET XL [Concomitant]
     Indication: Product used for unknown indication
     Dosage: 25 MILLIGRAM, BID (10 AM, 10 PM)
     Route: 048
     Dates: start: 2025
  7. APIXABAN [Concomitant]
     Active Substance: APIXABAN
     Indication: Product used for unknown indication
     Dosage: 5 MILLIGRAM, BID (10..10)
     Route: 048
     Dates: start: 2025
  8. ASPIRIN\ATORVASTATIN [Concomitant]
     Active Substance: ASPIRIN\ATORVASTATIN
     Indication: Product used for unknown indication
     Dosage: 1 DOSAGE FORM, QD, STRENGTH:75/20 (UNITS UNSPECIFIED), (A/L-AFTER LUNCH)
     Route: 048
     Dates: start: 2025
  9. CORDARONE [Concomitant]
     Active Substance: AMIODARONE HYDROCHLORIDE
     Indication: Product used for unknown indication
     Dosage: 200 MILLIGRAM, QD (10 AM)
     Route: 048
     Dates: start: 2025
  10. THYROX [Concomitant]
     Indication: Product used for unknown indication
     Dosage: 25 MICROGRAM, QD (6 AM)
     Route: 048
     Dates: start: 2025
  11. STILOZ [Concomitant]
     Indication: Product used for unknown indication
     Dosage: 50 MILLIGRAM, QD (10...10)
     Route: 048
     Dates: start: 2025
  12. COMPLAMINA [Concomitant]
     Indication: Product used for unknown indication
     Dosage: 150 MILLIGRAM, BID (10...10)
     Route: 048
     Dates: start: 2025
  13. RENEURO [Concomitant]
     Indication: Product used for unknown indication
     Dosage: 1 DOSAGE FORM, QD (A/L-AFTER LUNCH)
     Route: 048
     Dates: start: 2025
  14. LACTIHEP PLUS [Concomitant]
     Indication: Product used for unknown indication
     Dosage: 1 DOSAGE FORM, QD, HS (AT NIGHT 10 PM)
     Route: 048
     Dates: start: 2025
  15. CHYMORAL FORTE [Concomitant]
     Indication: Product used for unknown indication
     Dosage: 1 DOSAGE FORM, TID (6..2..10)
     Route: 048
     Dates: start: 2025
  16. KETOGRACE [Concomitant]
     Indication: Product used for unknown indication
     Dosage: 2 SCOOPS, TID (6..2..10), RENO POWDER
     Route: 048
     Dates: start: 2025
  17. INSUQUICK [Concomitant]
     Indication: Product used for unknown indication
     Dosage: 1 DOSAGE FORM, TID (BBF, BL, BD)
     Route: 058
     Dates: start: 2025
  18. MONOTRATE [Concomitant]
     Indication: Product used for unknown indication
     Dosage: 20 MILLIGRAM, BID (10AM..10PM)
     Route: 048
     Dates: start: 2025
  19. NIKORAN [Concomitant]
     Indication: Product used for unknown indication
     Dosage: 5 MILLIGRAM, TID (6AM--2PM--10PM)
     Route: 048
     Dates: start: 2025
  20. LASIX [Concomitant]
     Active Substance: FUROSEMIDE
     Indication: Product used for unknown indication
     Dosage: 0.3 MILLILITER PER HOUR
     Route: 042
     Dates: start: 2025

REACTIONS (1)
  - Death [Fatal]

NARRATIVE: CASE EVENT DATE: 20251121
